FAERS Safety Report 21586417 (Version 2)
Quarter: 2022Q4

REPORT INFORMATION
  Report Type: Spontaneous
  Country: FR (occurrence: FR)
  Receive Date: 20221112
  Receipt Date: 20221230
  Transmission Date: 20230113
  Serious: Yes (Death, Hospitalization, Other)
  Sender: FDA-Public Use
  Company Number: FR-AMGEN-FRASP2022193809

PATIENT
  Age: 73 Year
  Sex: Male
  Weight: 57 kg

DRUGS (8)
  1. LUMAKRAS [Suspect]
     Active Substance: SOTORASIB
     Indication: Lung neoplasm malignant
     Dosage: UNK
     Route: 065
     Dates: start: 20220510
  2. MORPHINE [Concomitant]
     Active Substance: MORPHINE
     Indication: Pain
  3. OXYCODONE HYDROCHLORIDE [Concomitant]
     Active Substance: OXYCODONE HYDROCHLORIDE
     Dosage: UNK
  4. LOVENOX [Concomitant]
     Active Substance: ENOXAPARIN SODIUM
  5. CLINUTREN DESSERT HP/HC [Concomitant]
  6. MIDAZOLAM [Concomitant]
     Active Substance: MIDAZOLAM
  7. Aminomix [Concomitant]
  8. MIDAZOLAM [Concomitant]
     Active Substance: MIDAZOLAM

REACTIONS (2)
  - Metastatic bronchial carcinoma [Fatal]
  - Treatment failure [Unknown]

NARRATIVE: CASE EVENT DATE: 20220916
